FAERS Safety Report 9811496 (Version 1)
Quarter: 2014Q1

REPORT INFORMATION
  Report Type: Report from Study
  Country: US (occurrence: US)
  Receive Date: 20140110
  Receipt Date: 20140110
  Transmission Date: 20141002
  Serious: Yes (Death, Hospitalization, Other)
  Sender: FDA-Public Use
  Company Number: US-EXELIXIS-XL18413003865

PATIENT
  Age: 15 Year
  Sex: Male

DRUGS (2)
  1. XL184 [Suspect]
     Indication: NEOPLASM
     Dosage: 55 MG/M2, QD
     Route: 048
     Dates: start: 20130930, end: 20131007
  2. DEXAMETHASONE [Concomitant]

REACTIONS (8)
  - Posterior reversible encephalopathy syndrome [Not Recovered/Not Resolved]
  - Acute respiratory distress syndrome [Not Recovered/Not Resolved]
  - Depressed level of consciousness [Not Recovered/Not Resolved]
  - Lung infection [Not Recovered/Not Resolved]
  - Convulsion [Not Recovered/Not Resolved]
  - Hypertension [Not Recovered/Not Resolved]
  - Hypoxia [Not Recovered/Not Resolved]
  - Neoplasm [Fatal]
